FAERS Safety Report 9528419 (Version 1)
Quarter: 2013Q1

REPORT INFORMATION
  Report Type: Spontaneous
  Country: US (occurrence: None)
  Receive Date: 20130314
  Receipt Date: 20130314
  Transmission Date: 20140127
  Serious: No
  Sender: FDA-Public Use
  Company Number: 1211USA008811

PATIENT
  Age: 58 Year
  Sex: Female

DRUGS (7)
  1. VICTRELIS [Suspect]
     Indication: HEPATITIS C
     Route: 048
     Dates: start: 201208
  2. PEGASYS [Suspect]
  3. RIBASPHERE [Suspect]
  4. METFORMIN (METFORMIN) [Concomitant]
  5. LISINOPRIL (LISINOPRIL) [Concomitant]
  6. ASPIRIN (ASPIRIN) [Concomitant]
  7. VITAMINS (UNSPECIFIED) (VITAMINS (UNSPECIFIED)) [Concomitant]

REACTIONS (2)
  - Anaemia [None]
  - Dysgeusia [None]
